FAERS Safety Report 13975852 (Version 1)
Quarter: 2017Q3

REPORT INFORMATION
  Report Type: Spontaneous
  Country: GB (occurrence: GB)
  Receive Date: 20170915
  Receipt Date: 20170915
  Transmission Date: 20171128
  Serious: Yes (Other)
  Sender: FDA-Public Use
  Company Number: GB-009507513-1709GBR003669

PATIENT
  Sex: Male

DRUGS (1)
  1. ZEPATIER [Suspect]
     Active Substance: ELBASVIR\GRAZOPREVIR
     Dosage: UNK
     Route: 048
     Dates: start: 20170829, end: 201709

REACTIONS (3)
  - Pulmonary haemorrhage [Unknown]
  - Pulmonary embolism [Unknown]
  - Haemoptysis [Unknown]

NARRATIVE: CASE EVENT DATE: 201709
